FAERS Safety Report 23678353 (Version 1)
Quarter: 2024Q1

REPORT INFORMATION
  Report Type: Spontaneous
  Country: US (occurrence: US)
  Receive Date: 20240327
  Receipt Date: 20240327
  Transmission Date: 20240410
  Serious: No
  Sender: FDA-Public Use
  Company Number: US-SA-SAC20240322000365

PATIENT
  Age: 68 Year
  Sex: Female

DRUGS (11)
  1. DUPIXENT [Suspect]
     Active Substance: DUPILUMAB
     Indication: Nasal polyps
     Dosage: 300 MG, QOW
     Route: 058
     Dates: start: 20240224
  2. CYCLOBENZAPRINE [Concomitant]
     Active Substance: CYCLOBENZAPRINE
  3. CLARITIN [Concomitant]
     Active Substance: LORATADINE
  4. DOXYCYCLINE [Concomitant]
     Active Substance: DOXYCYCLINE
  5. EPINEPHRINE [Concomitant]
     Active Substance: EPINEPHRINE
  6. FLUTICASONE [Concomitant]
     Active Substance: FLUTICASONE
  7. PREDNISONE [Concomitant]
     Active Substance: PREDNISONE
  8. PREGABALIN [Concomitant]
     Active Substance: PREGABALIN
  9. VANCOMYCIN [Concomitant]
     Active Substance: VANCOMYCIN
  10. ALBUTEROL SULFATE [Concomitant]
     Active Substance: ALBUTEROL SULFATE
  11. PREGABALIN [Concomitant]
     Active Substance: PREGABALIN

REACTIONS (2)
  - Rash macular [Recovered/Resolved]
  - Feeling hot [Recovered/Resolved]

NARRATIVE: CASE EVENT DATE: 20240220
